FAERS Safety Report 8866938 (Version 1)
Quarter: 2012Q4

REPORT INFORMATION
  Report Type: 
  Country: US (occurrence: US)
  Receive Date: 20121025
  Receipt Date: 20121025
  Transmission Date: 20130627
  Serious: No
  Sender: FDA-Public Use
  Company Number: US-AMGEN-USASP2012013979

PATIENT
  Age: 56 Year
  Sex: Male

DRUGS (6)
  1. ENBREL [Suspect]
     Indication: PRODUCT USED FOR UNKNOWN INDICATION
     Dosage: 50 mg, qwk
     Route: 058
  2. AMLODIPINE [Concomitant]
     Dosage: 2.5 mg, UNK
  3. RAMIPRIL [Concomitant]
     Dosage: 1.25 mg, UNK
  4. OMEPRAZOLE [Concomitant]
     Dosage: 20 mg, UNK
  5. CRESTOR [Concomitant]
     Dosage: 5 mg, UNK
  6. VITAMIN D /00107901/ [Concomitant]

REACTIONS (2)
  - Influenza like illness [Recovered/Resolved]
  - Nasopharyngitis [Recovered/Resolved]
